FAERS Safety Report 18973424 (Version 2)
Quarter: 2021Q1

REPORT INFORMATION
  Report Type: Spontaneous
  Country: CA (occurrence: CA)
  Receive Date: 20210305
  Receipt Date: 20210330
  Transmission Date: 20210420
  Serious: Yes (Other)
  Sender: FDA-Public Use
  Company Number: CA-GLAXOSMITHKLINE-CA2021AMR020698

PATIENT
  Sex: Male

DRUGS (3)
  1. BENLYSTA [Suspect]
     Active Substance: BELIMUMAB
     Indication: SYSTEMIC LUPUS ERYTHEMATOSUS
     Dosage: UNK
  2. BENLYSTA [Suspect]
     Active Substance: BELIMUMAB
     Dosage: UNK, 640
  3. BENLYSTA [Suspect]
     Active Substance: BELIMUMAB
     Dosage: 10 MG/KG

REACTIONS (8)
  - Suicidal ideation [Unknown]
  - Illness [Not Recovered/Not Resolved]
  - Pyrexia [Unknown]
  - Depression [Unknown]
  - Back pain [Not Recovered/Not Resolved]
  - Palpitations [Unknown]
  - Cough [Not Recovered/Not Resolved]
  - Chills [Unknown]
